FAERS Safety Report 7927389-0 (Version None)
Quarter: 2011Q4

REPORT INFORMATION
  Report Type: 
  Country: None (occurrence: None)
  Receive Date: 20111118
  Receipt Date: 20111108
  Transmission Date: 20120403
  Serious: Yes (Hospitalization)
  Sender: FDA-Public Use
  Company Number: US-BAYER-201039218NA

PATIENT
  Age: 35 Year
  Sex: Female
  Weight: 95 kg

DRUGS (1)
  1. YAZ [Suspect]
     Indication: PRODUCT USED FOR UNKNOWN INDICATION
     Route: 048
     Dates: start: 20060522, end: 20060712

REACTIONS (2)
  - PULMONARY EMBOLISM [None]
  - DEEP VEIN THROMBOSIS [None]
